FAERS Safety Report 18592462 (Version 7)
Quarter: 2022Q1

REPORT INFORMATION
  Report Type: Spontaneous
  Country: US (occurrence: US)
  Receive Date: 20201209
  Receipt Date: 20220303
  Transmission Date: 20220424
  Serious: Yes (Life-Threatening, Hospitalization, Disabling, Other)
  Sender: FDA-Public Use
  Company Number: NVSC2020US327110

PATIENT
  Age: 0 Year
  Sex: Male
  Weight: 5.7 kg

DRUGS (6)
  1. ZOLGENSMA [Suspect]
     Active Substance: ONASEMNOGENE ABEPARVOVEC-XIOI
     Indication: Spinal muscular atrophy
     Dosage: 30.3 ML, ONCE/SINGLE (1 TIME ONLY)
     Route: 042
     Dates: start: 20201111, end: 20201111
  2. METHYLPREDNISOLONE [Concomitant]
     Active Substance: METHYLPREDNISOLONE
     Indication: Product used for unknown indication
     Dosage: 1 MG/KG, Q6H
     Route: 065
  3. METHYLPREDNISOLONE [Concomitant]
     Active Substance: METHYLPREDNISOLONE
     Dosage: 34 MG, Q6H
     Route: 065
     Dates: start: 20201213, end: 20201217
  4. METHYLPREDNISOLONE [Concomitant]
     Active Substance: METHYLPREDNISOLONE
     Dosage: 17 MG, Q6H
     Route: 065
     Dates: start: 20201217, end: 20201224
  5. METHYLPREDNISOLONE [Concomitant]
     Active Substance: METHYLPREDNISOLONE
     Dosage: 9.5 MG, Q6H
     Route: 065
     Dates: start: 20201225, end: 20201227
  6. METHYLPREDNISOLONE [Concomitant]
     Active Substance: METHYLPREDNISOLONE
     Dosage: 4.75 MG, Q6H
     Route: 065
     Dates: start: 20201227, end: 20201229

REACTIONS (17)
  - Acute hepatic failure [Recovering/Resolving]
  - International normalised ratio increased [Unknown]
  - Activated partial thromboplastin time prolonged [Unknown]
  - Blood alkaline phosphatase increased [Unknown]
  - Blood bilirubin increased [Unknown]
  - Bilirubin conjugated increased [Unknown]
  - Aspartate aminotransferase increased [Unknown]
  - Alanine aminotransferase increased [Unknown]
  - Ocular icterus [Unknown]
  - Faeces pale [Unknown]
  - Irritability [Unknown]
  - Mental status changes [Unknown]
  - Chromaturia [Unknown]
  - Fatigue [Unknown]
  - Troponin I increased [Recovered/Resolved]
  - Liver function test increased [Unknown]
  - Hepatic enzyme increased [Recovered/Resolved]

NARRATIVE: CASE EVENT DATE: 20201204
